FAERS Safety Report 7335795 (Version 10)
Quarter: 2013Q2

REPORT INFORMATION
  Report Type: Spontaneous
  Country: US (occurrence: US)
  Receive Date: 20100330
  Receipt Date: 20130614
  Transmission Date: 20140414
  Serious: Yes (Hospitalization)
  Sender: FDA-Public Use
  Company Number: US-BIOGENIDEC-2010BI009464

PATIENT
  Age: 67 Year
  Sex: Female
  Weight: 77 kg

DRUGS (3)
  1. AVONEX [Suspect]
     Indication: MULTIPLE SCLEROSIS
     Route: 030
     Dates: start: 1999, end: 20040517
  2. AVONEX [Suspect]
     Indication: MULTIPLE SCLEROSIS
     Route: 030
     Dates: start: 20051010, end: 2013
  3. AVONEX [Suspect]
     Indication: MULTIPLE SCLEROSIS
     Route: 030
     Dates: start: 2013

REACTIONS (22)
  - Cervical spinal stenosis [Recovered/Resolved]
  - Gait disturbance [Not Recovered/Not Resolved]
  - Spinal column stenosis [Recovered/Resolved]
  - Neck surgery [Recovered/Resolved]
  - Thyroid adenoma [Recovered/Resolved]
  - Back pain [Recovered/Resolved]
  - Arthropathy [Recovered/Resolved]
  - Arthritis [Recovered/Resolved]
  - Fall [Recovered/Resolved]
  - Upper extremity mass [Not Recovered/Not Resolved]
  - Joint warmth [Not Recovered/Not Resolved]
  - Musculoskeletal disorder [Recovered/Resolved]
  - Mobility decreased [Recovered/Resolved]
  - Balance disorder [Not Recovered/Not Resolved]
  - Spinal osteoarthritis [Not Recovered/Not Resolved]
  - Dysstasia [Unknown]
  - Central nervous system lesion [Unknown]
  - Pain in extremity [Not Recovered/Not Resolved]
  - Muscle spasms [Not Recovered/Not Resolved]
  - Arthralgia [Recovered/Resolved]
  - Influenza like illness [Recovered/Resolved]
  - Muscular weakness [Recovered/Resolved]
